FAERS Safety Report 22051163 (Version 2)
Quarter: 2023Q1

REPORT INFORMATION
  Report Type: Report from Study
  Country: ES (occurrence: ES)
  Receive Date: 20230301
  Receipt Date: 20230314
  Transmission Date: 20230418
  Serious: Yes (Death, Hospitalization)
  Sender: FDA-Public Use
  Company Number: ES-KARYOPHARM-2023KPT000861

PATIENT
  Age: 70 Year
  Sex: Male

DRUGS (23)
  1. SELINEXOR [Suspect]
     Active Substance: SELINEXOR
     Indication: Plasma cell myeloma
     Dosage: 40 MG, WEEKLY
     Route: 048
     Dates: start: 20221212, end: 20230220
  2. POMALIDOMIDE [Suspect]
     Active Substance: POMALIDOMIDE
     Indication: Plasma cell myeloma
     Dosage: 4 MG, QD ON DAYS 1-21 OF EACH 28-DAY CYCLE
     Route: 048
     Dates: start: 20221212, end: 20230220
  3. DEXAMETHASONE [Suspect]
     Active Substance: DEXAMETHASONE
     Indication: Plasma cell myeloma
     Dosage: 40 MG, WEEKLY
     Route: 048
     Dates: start: 20221212, end: 20230220
  4. ACYCLOVIR [Concomitant]
     Active Substance: ACYCLOVIR
     Indication: Antiviral prophylaxis
     Dosage: 800 MG, QD
     Route: 048
     Dates: start: 202112
  5. TRIMETHOPRIM [Concomitant]
     Active Substance: TRIMETHOPRIM
     Indication: Antibiotic prophylaxis
     Dosage: 160 MG, QD
     Route: 048
     Dates: start: 202207
  6. SULFAMETHOXAZOLE [Concomitant]
     Active Substance: SULFAMETHOXAZOLE
     Indication: Antibiotic prophylaxis
     Dosage: 800 MG, QD
     Route: 048
     Dates: start: 202207
  7. ENALAPRIL [Concomitant]
     Active Substance: ENALAPRIL
     Indication: Hypertension
     Dosage: 10 MG, QD
     Route: 048
     Dates: start: 202112
  8. OMEPRAZOLE [Concomitant]
     Active Substance: OMEPRAZOLE
     Indication: Gastritis prophylaxis
     Dosage: 20 MG, QD
     Route: 048
     Dates: start: 202112
  9. LEVOFLOXACIN [Concomitant]
     Active Substance: LEVOFLOXACIN
     Indication: Infection prophylaxis
     Dosage: 500 MG, QD
     Route: 048
     Dates: start: 202210
  10. ALLOPURINOL [Concomitant]
     Active Substance: ALLOPURINOL
     Indication: Prophylaxis
     Dosage: 300 MG, QD
     Route: 048
     Dates: start: 202211
  11. ACETAMINOPHEN [Concomitant]
     Active Substance: ACETAMINOPHEN
     Indication: Bone pain
     Dosage: 1000 MG, PRN
     Route: 048
     Dates: start: 202112
  12. DENOSUMAB [Concomitant]
     Active Substance: DENOSUMAB
     Indication: Osteoporosis prophylaxis
     Dosage: 120 MG, MONTHLY
     Route: 058
     Dates: start: 20221212
  13. OLANZAPINE [Concomitant]
     Active Substance: OLANZAPINE
     Indication: Prophylaxis of nausea and vomiting
     Dosage: 2.5 MG, QD
     Route: 048
     Dates: start: 20221212, end: 20230207
  14. ONDANSETRON [Concomitant]
     Active Substance: ONDANSETRON
     Indication: Prophylaxis of nausea and vomiting
     Dosage: 8 MG, ONCE PRIOR TO SELINEXOR ADMINISTRATION AND EVERY 8 HOURS THE 48 H AFTER SELINEXOR ADMINISTRATI
     Route: 048
     Dates: start: 20221212, end: 20230207
  15. CHOLECALCIFEROL [Concomitant]
     Active Substance: CHOLECALCIFEROL
     Indication: Osteoporosis prophylaxis
     Dosage: 880 IU, QD
     Route: 048
     Dates: start: 20221219
  16. POTASSIUM [Concomitant]
     Active Substance: POTASSIUM
     Indication: Mineral supplementation
     Dosage: 600 MG, QD
     Route: 048
     Dates: start: 20221219
  17. CALCIUM [Concomitant]
     Active Substance: CALCIUM
     Indication: Osteoporosis prophylaxis
     Dosage: 1000 MG, QD
     Route: 048
     Dates: start: 20221219
  18. ENOXAPARIN [Concomitant]
     Active Substance: ENOXAPARIN
     Indication: Thrombosis prophylaxis
     Dosage: 40 MG, QD
     Route: 058
     Dates: start: 20221212
  19. EPREX [Concomitant]
     Active Substance: ERYTHROPOIETIN
     Indication: Anaemia prophylaxis
     Dosage: 40000 IU, WEEKLY
     Route: 058
     Dates: start: 20221212
  20. NEUPOGEN [Concomitant]
     Active Substance: FILGRASTIM
     Indication: Prophylaxis
     Dosage: 300 IU, WEEKLY
     Route: 058
     Dates: start: 20230109
  21. FUROSEMIDE [Concomitant]
     Active Substance: FUROSEMIDE
     Indication: Oedema peripheral
     Dosage: 40 MG, QD
     Route: 048
     Dates: start: 20221219
  22. SALMETEROL [Concomitant]
     Active Substance: SALMETEROL
     Indication: Pneumonia
     Dosage: 25 UG, BID
     Dates: start: 20221231, end: 202301
  23. FLUTICASONE PROPIONATE [Concomitant]
     Active Substance: FLUTICASONE PROPIONATE
     Indication: Oedema peripheral
     Dosage: 250 UG, BID
     Dates: start: 20221231, end: 202301

REACTIONS (1)
  - Febrile neutropenia [Fatal]

NARRATIVE: CASE EVENT DATE: 20230220
